FAERS Safety Report 9754501 (Version 2)
Quarter: 2013Q4

REPORT INFORMATION
  Report Type: Report from Study
  Country: DE (occurrence: TR)
  Receive Date: 20131213
  Receipt Date: 20131213
  Transmission Date: 20140711
  Serious: Yes (Death, Hospitalization)
  Sender: FDA-Public Use
  Company Number: DE-ACTELION-A-NJ2013-92182

PATIENT
  Age: 45 Year
  Sex: Female
  Weight: 52 kg

DRUGS (2)
  1. VENTAVIS [Suspect]
     Indication: CARDIAC DISORDER
     Dosage: 6 X 1/2, INHALATION
     Route: 055
     Dates: start: 20131129
  2. TRACLEER [Concomitant]
     Dosage: UNK
     Route: 048
     Dates: start: 20131028

REACTIONS (4)
  - Death [Fatal]
  - Syncope [Not Recovered/Not Resolved]
  - Vomiting [Not Recovered/Not Resolved]
  - Asthenia [Not Recovered/Not Resolved]
